FAERS Safety Report 8571024 (Version 4)
Quarter: 2014Q2

REPORT INFORMATION
  Report Type: Spontaneous
  Country: US (occurrence: US)
  Receive Date: 20120521
  Receipt Date: 20140416
  Transmission Date: 20141212
  Serious: Yes (Hospitalization)
  Sender: FDA-Public Use
  Company Number: US-US-EMD SERONO, INC.-7132749

PATIENT
  Age: 73 Year
  Sex: Male

DRUGS (11)
  1. REBIF [Suspect]
     Indication: MULTIPLE SCLEROSIS
     Route: 058
     Dates: start: 20120412
  2. REBIF [Suspect]
     Route: 058
     Dates: end: 20140330
  3. TEMAZEPAM [Concomitant]
     Indication: SLEEP DISORDER
  4. LEXAPRO [Concomitant]
     Indication: DEPRESSION
  5. PROVIGIL [Concomitant]
     Indication: SOMNOLENCE
  6. SENNA                              /00142201/ [Concomitant]
     Indication: GASTROINTESTINAL MOTILITY DISORDER
  7. MIRALAX [Concomitant]
     Indication: GASTROINTESTINAL MOTILITY DISORDER
  8. SIMVASTATIN [Concomitant]
     Indication: BLOOD CHOLESTEROL
  9. ATENOLOL [Concomitant]
     Indication: HYPERTENSION
  10. KEPPRA [Concomitant]
     Indication: TREMOR
  11. ALLOPURINOL [Concomitant]
     Indication: GOUT

REACTIONS (9)
  - Urinary tract infection [Recovered/Resolved]
  - Urosepsis [Recovering/Resolving]
  - Lip swelling [Unknown]
  - Asthenia [Not Recovered/Not Resolved]
  - Asthenia [Not Recovered/Not Resolved]
  - Malaise [Not Recovered/Not Resolved]
  - Skin reaction [Recovered/Resolved]
  - Depression [Not Recovered/Not Resolved]
  - Fatigue [Not Recovered/Not Resolved]
